FAERS Safety Report 14761635 (Version 2)
Quarter: 2019Q1

REPORT INFORMATION
  Report Type: Report from Study
  Country: None (occurrence: RO)
  Receive Date: 20180416
  Receipt Date: 20190117
  Transmission Date: 20190417
  Serious: Yes (Hospitalization, Other)
  Sender: FDA-Public Use
  Company Number: RO-ABBVIE-18K-135-2320701-00

PATIENT
  Sex: Female

DRUGS (9)
  1. AFLAMIL [Suspect]
     Active Substance: ACECLOFENAC
     Indication: PAIN
     Route: 048
     Dates: start: 20181204
  2. SULPHASALAZINE [Concomitant]
     Active Substance: SULFASALAZINE
     Indication: RHEUMATOID ARTHRITIS
     Route: 048
     Dates: start: 2014, end: 201705
  3. METHOTREXATE. [Concomitant]
     Active Substance: METHOTREXATE
     Indication: RHEUMATOID ARTHRITIS
     Dates: start: 2013, end: 2017
  4. ZINNAT [Concomitant]
     Active Substance: CEFUROXIME AXETIL
     Indication: POSTOPERATIVE CARE
     Route: 048
     Dates: start: 20180407, end: 20180410
  5. DIFLEX [Concomitant]
     Indication: PAIN
     Dosage: 2-3 APPLICATIONS PER DAY
     Route: 061
     Dates: start: 20181204
  6. HUMIRA [Suspect]
     Active Substance: ADALIMUMAB
     Indication: RHEUMATOID ARTHRITIS
     Route: 058
     Dates: start: 20150115
  7. NUROFEN PLUS [Concomitant]
     Active Substance: CODEINE PHOSPHATE\IBUPROFEN
     Indication: BONE PAIN
     Dosage: WHEN NEEDED
     Route: 048
     Dates: start: 2018
  8. HUMIRA [Suspect]
     Active Substance: ADALIMUMAB
     Route: 058
     Dates: start: 20190108
  9. SULPHASALAZINE [Concomitant]
     Active Substance: SULFASALAZINE
     Dates: start: 201705

REACTIONS (10)
  - Foot deformity [Unknown]
  - Nausea [Recovered/Resolved]
  - Abdominal pain upper [Recovered/Resolved]
  - Vomiting [Recovered/Resolved]
  - Syncope [Recovered/Resolved]
  - Foot deformity [Recovered/Resolved]
  - Post procedural oedema [Not Recovered/Not Resolved]
  - Procedural pain [Not Recovered/Not Resolved]
  - Pallor [Recovered/Resolved]
  - Headache [Recovered/Resolved]

NARRATIVE: CASE EVENT DATE: 2016
